FAERS Safety Report 7956645-5 (Version None)
Quarter: 2011Q4

REPORT INFORMATION
  Report Type: 
  Country: None (occurrence: None)
  Receive Date: 20111205
  Receipt Date: 20111130
  Transmission Date: 20120403
  Serious: Yes (Hospitalization)
  Sender: FDA-Public Use
  Company Number: FR-BAYER-2011-115396

PATIENT
  Age: 73 Year
  Sex: Male
  Weight: 99 kg

DRUGS (10)
  1. SORAFENIB (RAF KINASE INHIBITOR) [Suspect]
     Indication: HEPATIC NEOPLASM MALIGNANT
     Dosage: 400 MG, BID
     Route: 048
     Dates: start: 20110608
  2. TOCOPHERYL ACETATE [Concomitant]
     Indication: HYPERCHOLESTEROLAEMIA
     Dosage: 1000 MG, QD
     Dates: start: 20070101
  3. CANDESARTAN CILEXETIL [Concomitant]
     Indication: HYPERTENSION
     Dosage: 1 DF, QD
     Dates: start: 20070101
  4. BISOPROLOL FUMARATE [Concomitant]
     Indication: HYPERTENSION
     Dosage: 5 MG, QD
     Dates: start: 20080225
  5. ASPIRIN [Concomitant]
     Indication: ARRHYTHMIA PROPHYLAXIS
     Dosage: 75 MG, QD
  6. LOPERAMIDE HCL [Concomitant]
     Indication: DIARRHOEA
     Dosage: DAILY DOSE: 2-6 CAPSULES DAILY
     Dates: start: 20110725
  7. LINIFANIB [Suspect]
     Indication: HEPATIC NEOPLASM MALIGNANT
     Dosage: UNK
  8. FUSIDIC ACID [Concomitant]
     Indication: RASH
     Dosage: 1 DF, QD
     Dates: start: 20110620
  9. SMECTA [AL+ HYDROX-MGCO3 GEL,AL+ MG+ SILIC,GLUCOSE MONOHYDR,GLYCYR [Concomitant]
     Indication: DIARRHOEA
     Dosage: 1 DF, QD
     Dates: start: 20110725
  10. URSODIOL [Concomitant]
     Indication: HYPERCHOLESTEROLAEMIA
     Dosage: 5 MG/KG, QD
     Dates: start: 20070101

REACTIONS (3)
  - ATRIAL FIBRILLATION [None]
  - DYSPNOEA [None]
  - FATIGUE [None]
